FAERS Safety Report 8386369-4 (Version None)
Quarter: 2012Q2

REPORT INFORMATION
  Report Type: 
  Country: None (occurrence: None)
  Receive Date: 20120523
  Receipt Date: 20120510
  Transmission Date: 20120825
  Serious: Yes (Hospitalization)
  Sender: FDA-Public Use
  Company Number: AUR-APL-2012-02293

PATIENT
  Age: 28 Month
  Sex: Male

DRUGS (1)
  1. LEVETIRACETAM [Suspect]
     Indication: PRODUCT USED FOR UNKNOWN INDICATION
     Dosage: (20 MG/KG,1 D)

REACTIONS (5)
  - CRYING [None]
  - ABASIA [None]
  - AGGRESSION [None]
  - MUSCLE TWITCHING [None]
  - ENCEPHALITIS AUTOIMMUNE [None]
